FAERS Safety Report 13333116 (Version 2)
Quarter: 2017Q1

REPORT INFORMATION
  Report Type: Spontaneous
  Country: AT (occurrence: AT)
  Receive Date: 20170314
  Receipt Date: 20170322
  Transmission Date: 20170428
  Serious: Yes (Death, Other)
  Sender: FDA-Public Use
  Company Number: AT-INCYTE CORPORATION-2017IN001879

PATIENT

DRUGS (18)
  1. MEROPENEM. [Concomitant]
     Active Substance: MEROPENEM
     Indication: PNEUMONIA
     Dosage: 2 G, TID
     Route: 065
  2. CYMEVENE [Concomitant]
     Active Substance: GANCICLOVIR
     Indication: CYTOMEGALOVIRUS INFECTION
     Dosage: 260 MG, BID
     Route: 065
  3. PARENTERAL NUTRITION [Concomitant]
     Active Substance: AMINO ACIDS\DEXTROSE\ELECTROLYTES NOS
     Route: 065
  4. SOLU DACORTIN [Concomitant]
     Indication: GRAFT VERSUS HOST DISEASE
     Dosage: 150 MG, QD
     Route: 065
  5. SOMATOSTATIN [Concomitant]
     Active Substance: SOMATOSTATIN
     Indication: INTESTINAL HAEMORRHAGE
     Dosage: 6 G, UNK
     Route: 065
  6. VENDAL [Concomitant]
     Indication: ABDOMINAL PAIN
     Route: 065
  7. CANCIDAS [Concomitant]
     Active Substance: CASPOFUNGIN ACETATE
     Indication: PNEUMONIA
     Dosage: 50 MG, UNK
     Route: 065
  8. SOMATOSTATIN [Concomitant]
     Active Substance: SOMATOSTATIN
     Indication: GRAFT VERSUS HOST DISEASE
     Dosage: 6 G, UNK
     Route: 065
  9. CYKLOKAPRON [Concomitant]
     Active Substance: TRANEXAMIC ACID
     Indication: GRAFT VERSUS HOST DISEASE
     Dosage: 3 X 2 A
     Route: 065
  10. AVELOX [Concomitant]
     Active Substance: MOXIFLOXACIN HYDROCHLORIDE
     Indication: PNEUMONIA
     Dosage: 400 MG, BID
     Route: 065
  11. MEROPENEM. [Concomitant]
     Active Substance: MEROPENEM
     Dosage: 2 G, TID
     Route: 065
  12. CYKLOKAPRON [Concomitant]
     Active Substance: TRANEXAMIC ACID
     Indication: INTESTINAL HAEMORRHAGE
  13. JAKAVI [Suspect]
     Active Substance: RUXOLITINIB
     Indication: GRAFT VERSUS HOST DISEASE
     Dosage: 10 MG, BID
     Route: 065
     Dates: start: 20170213, end: 20170227
  14. PROLASTIN [Concomitant]
     Active Substance: .ALPHA.1-PROTEINASE INHIBITOR HUMAN
     Indication: GRAFT VERSUS HOST DISEASE
     Dosage: 6000MG1X1, 4000MG 1X1, 2000MG 3X1
     Route: 065
  15. ANAEROBEX [Concomitant]
     Indication: GRAFT VERSUS HOST DISEASE
     Dosage: 1.5 G, UNK
     Route: 065
  16. PANTOLOC [Concomitant]
     Active Substance: PANTOPRAZOLE SODIUM
     Indication: GRAFT VERSUS HOST DISEASE
     Dosage: 3 X 2A
     Route: 065
  17. DORMICUM (MIDAZOLAM HYDROCHLORIDE) [Concomitant]
     Active Substance: MIDAZOLAM HYDROCHLORIDE
     Indication: PAIN
     Route: 065
  18. PARENTERAL NUTRITION [Concomitant]
     Active Substance: AMINO ACIDS\DEXTROSE\ELECTROLYTES NOS
     Indication: GRAFT VERSUS HOST DISEASE
     Route: 065

REACTIONS (5)
  - Encephalitis toxic [Unknown]
  - Pneumonia [Unknown]
  - Graft versus host disease in gastrointestinal tract [Unknown]
  - Product use issue [Unknown]
  - Graft versus host disease [Fatal]

NARRATIVE: CASE EVENT DATE: 20170213
